FAERS Safety Report 4613764-9 (Version None)
Quarter: 2005Q1

REPORT INFORMATION
  Report Type: 
  Country: None (occurrence: None)
  Receive Date: 20050321
  Receipt Date: 20050201
  Transmission Date: 20050727
  Serious: Yes (Death, Hospitalization, Other)
  Sender: FDA-Public Use
  Company Number: PHEH2005US01534

PATIENT
  Age: 78 Year
  Sex: Male
  Weight: 68 kg

DRUGS (11)
  1. NEORAL [Suspect]
     Indication: RENAL TRANSPLANT
     Dosage: 75 MG, BID
     Route: 048
     Dates: start: 19950201
  2. RADIOTHERAPY [Concomitant]
  3. ALLOPURINOL [Concomitant]
     Dosage: 200 MG, QD
     Route: 048
  4. CELLCEPT [Concomitant]
     Dosage: UNK MG, BID
  5. METOPROLOL TARTRATE [Concomitant]
     Dosage: 125 MG, BID
     Route: 048
  6. DILTIAZEM [Concomitant]
     Dosage: 240 MG, QD
     Route: 048
  7. PLAVIX [Concomitant]
     Dosage: 75 MG, QD
     Route: 048
  8. LASIX [Concomitant]
     Dosage: 40 MG, QD
     Route: 048
  9. DIGOXIN [Concomitant]
     Dosage: 125 MG 1/2 TABLET, QD
  10. PREDNISONE [Concomitant]
     Dosage: 20 MG, QOD
     Route: 048
  11. AMITRIPTYLINE HCL [Concomitant]
     Dosage: 50 MG, QHS
     Route: 048

REACTIONS (19)
  - ASTHENIA [None]
  - COMPUTERISED TOMOGRAM ABNORMAL [None]
  - DEATH [None]
  - DIABETES MELLITUS NON-INSULIN-DEPENDENT [None]
  - ERYTHEMA [None]
  - HIP FRACTURE [None]
  - HYPERPARATHYROIDISM SECONDARY [None]
  - LOSS OF CONSCIOUSNESS [None]
  - MUCOSAL INFLAMMATION [None]
  - ORAL CANDIDIASIS [None]
  - PLEURAL EFFUSION [None]
  - PNEUMONIA [None]
  - POST HERPETIC NEURALGIA [None]
  - PROSTATE INFECTION [None]
  - RENAL FAILURE [None]
  - SPINAL OSTEOARTHRITIS [None]
  - SQUAMOUS CELL CARCINOMA [None]
  - SURGERY [None]
  - THERAPEUTIC AGENT TOXICITY [None]
